FAERS Safety Report 4485226-3 (Version None)
Quarter: 2004Q4

REPORT INFORMATION
  Report Type: 
  Country: None (occurrence: None)
  Receive Date: 20041026
  Receipt Date: 20040715
  Transmission Date: 20050328
  Serious: No
  Sender: FDA-Public Use
  Company Number: US-BRISTOL-MYERS SQUIBB COMPANY-12641650

PATIENT
  Age: 51 Year
  Sex: Female
  Weight: 88 kg

DRUGS (6)
  1. GLUCOPHAGE XR [Suspect]
     Indication: WEIGHT DECREASED
     Route: 048
     Dates: start: 20040714
  2. GLUCOPHAGE XR [Suspect]
     Indication: HEPATIC STEATOSIS
     Route: 048
     Dates: start: 20040714
  3. GLUCOPHAGE XR [Suspect]
     Indication: BLOOD GLUCOSE INCREASED
     Route: 048
     Dates: start: 20040714
  4. SYNTHROID [Concomitant]
  5. SERZONE [Concomitant]
  6. STARLIX [Concomitant]

REACTIONS (2)
  - FLATULENCE [None]
  - PAIN [None]
